FAERS Safety Report 13884523 (Version 1)
Quarter: 2017Q3

REPORT INFORMATION
  Report Type: Spontaneous
  Country: PR (occurrence: US)
  Receive Date: 20170821
  Receipt Date: 20170821
  Transmission Date: 20171127
  Serious: No
  Sender: FDA-Public Use
  Company Number: PR-MYLANLABS-2017M1035976

PATIENT
  Age: 49 Year
  Sex: Female

DRUGS (1)
  1. CLORAZEPATE DIPOTASSIUM TABLETS, USP [Suspect]
     Active Substance: CLORAZEPATE DIPOTASSIUM
     Indication: INSOMNIA
     Dosage: 15 MG, PRN
     Route: 048
     Dates: start: 201704

REACTIONS (1)
  - Drug ineffective for unapproved indication [Not Recovered/Not Resolved]

NARRATIVE: CASE EVENT DATE: 201704
